FAERS Safety Report 7094027-1 (Version None)
Quarter: 2010Q4

REPORT INFORMATION
  Report Type: 
  Country: None (occurrence: None)
  Receive Date: 20101101
  Receipt Date: 20101013
  Transmission Date: 20110411
  Serious: Yes (Death)
  Sender: FDA-Public Use
  Company Number: FKO201000463

PATIENT
  Age: 76 Year
  Sex: Male

DRUGS (3)
  1. ETOPOSIDE [Suspect]
     Indication: NON-HODGKIN'S LYMPHOMA
  2. CYCLOPHOSPHAMIDE [Suspect]
     Indication: NON-HODGKIN'S LYMPHOMA
  3. MAPTERA (REFLIXIMAB) (MONOCLONAL ANTIBODIES) (MONOCLONAL ANTIBODIES) [Suspect]
     Indication: NON-HODGKIN'S LYMPHOMA

REACTIONS (25)
  - BLOOD BLISTER [None]
  - BLOOD PRESSURE DECREASED [None]
  - CHILLS [None]
  - CLUMSINESS [None]
  - COAGULOPATHY [None]
  - DISORIENTATION [None]
  - DYSPNOEA [None]
  - ERYTHEMA [None]
  - FEELING HOT [None]
  - GAIT DISTURBANCE [None]
  - HAEMATOCRIT DECREASED [None]
  - HAEMOGLOBIN DECREASED [None]
  - HEART RATE INCREASED [None]
  - HYPERGLYCAEMIA [None]
  - ISCHAEMIA [None]
  - METABOLIC ACIDOSIS [None]
  - PAIN [None]
  - PLATELET COUNT DECREASED [None]
  - PULSE ABSENT [None]
  - PURPURA FULMINANS [None]
  - SEPTIC SHOCK [None]
  - SKIN DISCOLOURATION [None]
  - SKIN NECROSIS [None]
  - THROMBOCYTOPENIA [None]
  - WHITE BLOOD CELL COUNT DECREASED [None]
